FAERS Safety Report 21896657 (Version 2)
Quarter: 2023Q1

REPORT INFORMATION
  Report Type: Report from Study
  Country: BR (occurrence: BR)
  Receive Date: 20230123
  Receipt Date: 20230206
  Transmission Date: 20230418
  Serious: Yes (Other)
  Sender: FDA-Public Use
  Company Number: BR-BIOGEN-2023BI01182509

PATIENT
  Age: 57 Year
  Sex: Male
  Weight: 76 kg

DRUGS (3)
  1. TYSABRI [Suspect]
     Active Substance: NATALIZUMAB
     Indication: Multiple sclerosis
     Route: 050
     Dates: start: 2013
  2. Torsilax (DICLOFENAC SODIUM, CARISOPRODOL, PARACETAMOL, CAFFEINE) [Concomitant]
     Indication: Headache
     Route: 050
  3. LOSARTAN [Concomitant]
     Active Substance: LOSARTAN
     Indication: Hypertension
     Route: 050

REACTIONS (8)
  - Arterial occlusive disease [Unknown]
  - Memory impairment [Recovered/Resolved]
  - Influenza [Not Recovered/Not Resolved]
  - Cough [Recovered/Resolved]
  - Asthenia [Recovered/Resolved]
  - Chest pain [Not Recovered/Not Resolved]
  - Spinal pain [Not Recovered/Not Resolved]
  - Fatigue [Not Recovered/Not Resolved]

NARRATIVE: CASE EVENT DATE: 20221101
